FAERS Safety Report 5852232-3 (Version None)
Quarter: 2008Q3

REPORT INFORMATION
  Report Type: 
  Country: None (occurrence: None)
  Receive Date: 20080821
  Receipt Date: 20080818
  Transmission Date: 20090109
  Serious: Yes (Death, Other)
  Sender: FDA-Public Use
  Company Number: NL-BRISTOL-MYERS SQUIBB COMPANY-14305833

PATIENT
  Age: 41 Year
  Sex: Male

DRUGS (9)
  1. CYCLOPHOSPHAMIDE [Suspect]
     Indication: T-CELL LYMPHOMA
  2. CISPLATIN [Suspect]
     Indication: T-CELL LYMPHOMA
  3. ADRIAMYCIN PFS [Suspect]
     Indication: T-CELL LYMPHOMA
  4. ONCOVIN [Suspect]
     Indication: T-CELL LYMPHOMA
  5. ALEMTUZUMAB [Suspect]
     Indication: T-CELL LYMPHOMA
     Dates: end: 20061001
  6. PREDNISONE TAB [Suspect]
     Indication: T-CELL LYMPHOMA
  7. DEXAMETHASONE TAB [Suspect]
     Indication: T-CELL LYMPHOMA
  8. CYTARABINE [Suspect]
     Indication: T-CELL LYMPHOMA
  9. RITUXAN [Suspect]

REACTIONS (5)
  - CYTOMEGALOVIRUS INFECTION [None]
  - DUODENITIS [None]
  - EPSTEIN-BARR VIRUS INFECTION [None]
  - FEBRILE NEUTROPENIA [None]
  - HISTIOCYTOSIS HAEMATOPHAGIC [None]
